FAERS Safety Report 12095353 (Version 1)
Quarter: 2016Q1

REPORT INFORMATION
  Report Type: Spontaneous
  Country: FR (occurrence: FR)
  Receive Date: 20160219
  Receipt Date: 20160219
  Transmission Date: 20160526
  Serious: Yes (Life-Threatening)
  Sender: FDA-Public Use
  Company Number: FR-ASTRAZENECA-2016SE16621

PATIENT
  Age: 3970 Day
  Sex: Male

DRUGS (17)
  1. INEXIUM [Suspect]
     Active Substance: ESOMEPRAZOLE
     Route: 048
     Dates: start: 20160130
  2. AMBISOME [Suspect]
     Active Substance: AMPHOTERICIN B
     Route: 065
     Dates: start: 20160201
  3. NETILMICIN [Suspect]
     Active Substance: NETILMICIN
     Route: 065
     Dates: start: 20160122
  4. ZOVIRAX [Suspect]
     Active Substance: ACYCLOVIR
     Route: 065
     Dates: start: 20160122
  5. CICLOSPORIN [Suspect]
     Active Substance: CYCLOSPORINE
     Route: 065
     Dates: start: 20160130
  6. ZOPHREN [Suspect]
     Active Substance: ONDANSETRON
     Route: 065
     Dates: start: 20160130
  7. COVERSYL [Concomitant]
     Active Substance: PERINDOPRIL
  8. FUNGIZONE [Suspect]
     Active Substance: AMPHOTERICIN B
     Route: 065
     Dates: start: 20160122
  9. FORTUM [Suspect]
     Active Substance: CEFTAZIDIME
     Route: 065
     Dates: start: 20160124
  10. COLIMYCINE [Suspect]
     Active Substance: COLISTIMETHATE SODIUM
     Route: 065
     Dates: start: 20160122
  11. CIFLOX [Suspect]
     Active Substance: CIPROFLOXACIN
     Route: 065
     Dates: start: 20160203
  12. LAROXYL [Suspect]
     Active Substance: AMITRIPTYLINE
     Route: 065
     Dates: start: 20160131
  13. CLAIRYG [Suspect]
     Active Substance: HUMAN IMMUNOGLOBULIN G
     Dosage: 10 MCI ONCE
     Route: 065
     Dates: start: 20160122, end: 20160122
  14. TARGOCID [Suspect]
     Active Substance: TEICOPLANIN
     Route: 042
     Dates: start: 20160129
  15. KEFORAL [Suspect]
     Active Substance: CEFAMANDOLE
     Route: 048
     Dates: start: 20160122
  16. LOVENOX [Suspect]
     Active Substance: ENOXAPARIN SODIUM
     Route: 058
     Dates: start: 20160122
  17. TRIFLUCAN [Suspect]
     Active Substance: FLUCONAZOLE
     Route: 065
     Dates: start: 20160122

REACTIONS (3)
  - Stevens-Johnson syndrome [Not Recovered/Not Resolved]
  - Graft versus host disease [Unknown]
  - Pyrexia [Unknown]

NARRATIVE: CASE EVENT DATE: 20160201
